FAERS Safety Report 4550731-8 (Version None)
Quarter: 2004Q4

REPORT INFORMATION
  Report Type: 
  Country: None (occurrence: None)
  Receive Date: 20041217
  Receipt Date: 20040927
  Transmission Date: 20050328
  Serious: No
  Sender: FDA-Public Use
  Company Number: 2004-BP-08950BP

PATIENT
  Age: 61 Year
  Sex: Female

DRUGS (6)
  1. SPIRIVA [Suspect]
     Indication: CHRONIC OBSTRUCTIVE AIRWAYS DISEASE
     Dosage: 18 MCG *18 MCG) IH
     Route: 055
     Dates: start: 20041001
  2. NEXIUM [Concomitant]
  3. DIFLUCAN [Concomitant]
  4. FORADIL AEROLIZER (FORMOTEROL FUMARATE) [Concomitant]
  5. IPRATROPIUM BROMIDE [Concomitant]
  6. METHADONE HCL [Concomitant]

REACTIONS (1)
  - DRUG INEFFECTIVE [None]
